FAERS Safety Report 18248523 (Version 2)
Quarter: 2020Q4

REPORT INFORMATION
  Report Type: Spontaneous
  Country: DE (occurrence: DE)
  Receive Date: 20200909
  Receipt Date: 20201123
  Transmission Date: 20210113
  Serious: Yes (Other)
  Sender: FDA-Public Use
  Company Number: DE-JNJFOC-20200844994

PATIENT
  Age: 55 Year

DRUGS (4)
  1. THALIDOMIDE [Suspect]
     Active Substance: THALIDOMIDE
     Indication: HYPERGAMMAGLOBULINAEMIA BENIGN MONOCLONAL
     Route: 065
  2. DARZALEX [Suspect]
     Active Substance: DARATUMUMAB
     Indication: HYPERGAMMAGLOBULINAEMIA BENIGN MONOCLONAL
     Route: 065
  3. DEXAMETHASONE. [Suspect]
     Active Substance: DEXAMETHASONE
     Indication: HYPERGAMMAGLOBULINAEMIA BENIGN MONOCLONAL
     Route: 065
  4. VELCADE [Suspect]
     Active Substance: BORTEZOMIB
     Indication: HYPERGAMMAGLOBULINAEMIA BENIGN MONOCLONAL
     Route: 065

REACTIONS (3)
  - Polyneuropathy in malignant disease [Unknown]
  - Product use in unapproved indication [Unknown]
  - Off label use [Unknown]
